FAERS Safety Report 6699578-7 (Version None)
Quarter: 2010Q2

REPORT INFORMATION
  Report Type: 
  Country: None (occurrence: None)
  Receive Date: 20100428
  Receipt Date: 20100419
  Transmission Date: 20101027
  Serious: Yes (Hospitalization)
  Sender: FDA-Public Use
  Company Number: US-BIOGENIDEC-2009BI040385

PATIENT
  Age: 66 Year
  Sex: Female

DRUGS (2)
  1. TYSABRI [Suspect]
     Indication: MULTIPLE SCLEROSIS
     Route: 042
     Dates: start: 20081223, end: 20100105
  2. TYSABRI [Suspect]

REACTIONS (5)
  - MEMORY IMPAIRMENT [None]
  - MENTAL IMPAIRMENT [None]
  - PROCEDURAL PAIN [None]
  - SCOLIOSIS [None]
  - SPINAL FUSION SURGERY [None]
